FAERS Safety Report 8950380 (Version 1)
Quarter: 2012Q4

REPORT INFORMATION
  Report Type: Report from Study
  Country: CA (occurrence: CA)
  Receive Date: 20121207
  Receipt Date: 20121207
  Transmission Date: 20130627
  Serious: Yes (Other)
  Sender: FDA-Public Use
  Company Number: CA-JNJFOC-20121115058

PATIENT
  Age: 39 None
  Sex: Male
  Weight: 99.5 kg

DRUGS (1)
  1. REMICADE [Suspect]
     Indication: CROHN^S DISEASE
     Route: 042
     Dates: start: 20091101

REACTIONS (4)
  - Blood urine present [Unknown]
  - White blood cell count increased [Unknown]
  - Crohn^s disease [Recovering/Resolving]
  - Back pain [Unknown]
